FAERS Safety Report 8483728-6 (Version None)
Quarter: 2012Q3

REPORT INFORMATION
  Report Type: 
  Country: None (occurrence: None)
  Receive Date: 20120703
  Receipt Date: 20120625
  Transmission Date: 20120928
  Serious: Yes (Hospitalization)
  Sender: FDA-Public Use
  Company Number: US-BIOGENIDEC-2012BI022960

PATIENT
  Age: 73 Year
  Sex: Female

DRUGS (2)
  1. TYSABRI [Suspect]
     Indication: MULTIPLE SCLEROSIS
     Route: 042
     Dates: start: 20080211, end: 20090429
  2. TYSABRI [Suspect]
     Route: 042
     Dates: start: 20091214

REACTIONS (3)
  - HIP FRACTURE [None]
  - FALL [None]
  - MULTIPLE SCLEROSIS RELAPSE [None]
